FAERS Safety Report 5008939-3 (Version None)
Quarter: 2006Q2

REPORT INFORMATION
  Report Type: 
  Country: None (occurrence: None)
  Receive Date: 20060404
  Receipt Date: 20060201
  Transmission Date: 20061013
  Serious: Yes (Other)
  Sender: FDA-Public Use
  Company Number: US200512000062

PATIENT
  Age: 41 Year
  Sex: Female

DRUGS (3)
  1. CYMBALTA [Suspect]
     Indication: NEURALGIA
     Dosage: 120 MG, ORAL
     Route: 048
     Dates: start: 20050201
  2. REMERON [Concomitant]
  3. LAMICTAL [Concomitant]

REACTIONS (1)
  - HYPONATRAEMIA [None]
